FAERS Safety Report 6248319-6 (Version None)
Quarter: 2009Q2

REPORT INFORMATION
  Report Type: 
  Country: None (occurrence: None)
  Receive Date: 20090629
  Receipt Date: 20090616
  Transmission Date: 20091009
  Serious: Yes (Other)
  Sender: FDA-Public Use
  Company Number: PHHY2009BR24219

PATIENT
  Sex: Female

DRUGS (2)
  1. DIOVAN [Suspect]
     Dosage: 80 MG/DAY
  2. EXFORGE [Suspect]
     Dosage: 160/5 MG/DAY

REACTIONS (4)
  - COUGH [None]
  - SNORING [None]
  - THROAT IRRITATION [None]
  - THROAT TIGHTNESS [None]
